FAERS Safety Report 16893117 (Version 1)
Quarter: 2019Q4

REPORT INFORMATION
  Report Type: Spontaneous
  Country: GB (occurrence: GB)
  Receive Date: 20191008
  Receipt Date: 20191008
  Transmission Date: 20200122
  Serious: Yes (Other)
  Sender: FDA-Public Use
  Company Number: GB-TEVA-2019-GB-1117506

PATIENT
  Age: 39 Year
  Sex: Female
  Weight: 60 kg

DRUGS (2)
  1. TEVA UK FLUCONAZOLE [Suspect]
     Active Substance: FLUCONAZOLE
     Route: 048
     Dates: start: 20190907, end: 20190907
  2. KEPPRA [Concomitant]
     Active Substance: LEVETIRACETAM

REACTIONS (4)
  - Eye irritation [Recovered/Resolved with Sequelae]
  - Dry eye [Recovering/Resolving]
  - Tongue blistering [Not Recovered/Not Resolved]
  - Ocular hyperaemia [Recovering/Resolving]

NARRATIVE: CASE EVENT DATE: 20190907
